FAERS Safety Report 5123411-8 (Version None)
Quarter: 2006Q4

REPORT INFORMATION
  Report Type: 
  Country: None (occurrence: None)
  Receive Date: 20061005
  Receipt Date: 20060920
  Transmission Date: 20070319
  Serious: No
  Sender: FDA-Public Use
  Company Number: JP200609002508

PATIENT
  Age: 58 Year
  Sex: Female

DRUGS (9)
  1. ZYPREXA [Suspect]
     Dosage: 2.5 MG, DAILY (1/D), ORAL
     Route: 048
     Dates: start: 20051224
  2. LENDORM [Concomitant]
  3. ROHYPNOL (FLUNITRAZEPAM) [Concomitant]
  4. METHYCOBAL (MECOBALAMIN) [Concomitant]
  5. TRAZODONE HCL [Concomitant]
  6. CINAL (ASCORBIC ACID, CALCIUM PANTOTHENATE) [Concomitant]
  7. SELBEX (TEPRENONE) [Concomitant]
  8. LAC B (LACTOBACILLUS BIFIDUS, LYOPHILIZED) [Concomitant]
  9. LEXOTAN (BROMAZEPAM) [Concomitant]

REACTIONS (2)
  - MENORRHAGIA [None]
  - POSTMENOPAUSAL HAEMORRHAGE [None]
